FAERS Safety Report 5627145-2 (Version None)
Quarter: 2008Q1

REPORT INFORMATION
  Report Type: 
  Country: None (occurrence: None)
  Receive Date: 20080212
  Receipt Date: 20080212
  Transmission Date: 20080703
  Serious: Yes (Hospitalization)
  Sender: FDA-Public Use
  Company Number: None

PATIENT
  Sex: Female
  Weight: 108.8633 kg

DRUGS (2)
  1. BOTOX [Suspect]
     Indication: MULTIPLE SCLEROSIS
     Dosage: ONCE IM
     Route: 030
     Dates: start: 20080124, end: 20080124
  2. BOTOX [Suspect]
     Indication: MUSCLE SPASTICITY
     Dosage: ONCE IM
     Route: 030
     Dates: start: 20080124, end: 20080124

REACTIONS (5)
  - CONDITION AGGRAVATED [None]
  - DIPLOPIA [None]
  - MULTIPLE SCLEROSIS [None]
  - POSTURE ABNORMAL [None]
  - SOMNOLENCE [None]
